FAERS Safety Report 14576860 (Version 1)
Quarter: 2018Q1

REPORT INFORMATION
  Report Type: Spontaneous
  Country: US (occurrence: US)
  Receive Date: 20180225
  Receipt Date: 20180225
  Transmission Date: 20180509
  Serious: Yes (Other)
  Sender: FDA-Public Use
  Company Number: None

PATIENT
  Age: 19 Year
  Sex: Male
  Weight: 74.25 kg

DRUGS (9)
  1. TAMIFLU [Suspect]
     Active Substance: OSELTAMIVIR PHOSPHATE
     Indication: INFLUENZA
     Dosage: ?          QUANTITY:1 TABLET(S);?
     Route: 048
     Dates: start: 20171218, end: 20171222
  2. TROKENDI [Concomitant]
     Active Substance: TOPIRAMATE
  3. CITALOPRAM [Concomitant]
     Active Substance: CITALOPRAM HYDROBROMIDE
  4. ETHOSUXIMIDE. [Concomitant]
     Active Substance: ETHOSUXIMIDE
  5. MAGNESIUM [Concomitant]
     Active Substance: MAGNESIUM
  6. VITAMIN D [Concomitant]
     Active Substance: CHOLECALCIFEROL
  7. MIRTAZIPENE [Concomitant]
  8. DIAZEPAM. [Concomitant]
     Active Substance: DIAZEPAM
  9. ADDERALL [Concomitant]
     Active Substance: AMPHETAMINE ASPARTATE\AMPHETAMINE SULFATE\DEXTROAMPHETAMINE SACCHARATE\DEXTROAMPHETAMINE SULFATE

REACTIONS (4)
  - Depression [None]
  - Withdrawal syndrome [None]
  - Paranoia [None]
  - Hallucination [None]

NARRATIVE: CASE EVENT DATE: 20171219
